FAERS Safety Report 13383154 (Version 1)
Quarter: 2017Q1

REPORT INFORMATION
  Report Type: Spontaneous
  Country: DE (occurrence: DE)
  Receive Date: 20170329
  Receipt Date: 20170329
  Transmission Date: 20170429
  Serious: Yes (Hospitalization)
  Sender: FDA-Public Use
  Company Number: DE-ELI_LILLY_AND_COMPANY-DE201703008577

PATIENT
  Sex: Male

DRUGS (4)
  1. TAMSULOSIN [Concomitant]
     Active Substance: TAMSULOSIN
  2. CIALIS [Suspect]
     Active Substance: TADALAFIL
     Dosage: 5 MG, QD
     Route: 048
     Dates: start: 2015
  3. XARELTO [Concomitant]
     Active Substance: RIVAROXABAN
     Dosage: 20 UNK, UNK
  4. CIALIS [Suspect]
     Active Substance: TADALAFIL
     Indication: PROSTATOMEGALY
     Dosage: 10 MG, QD
     Route: 048
     Dates: start: 2015

REACTIONS (4)
  - Arrhythmia [Recovered/Resolved]
  - Insomnia [Unknown]
  - Dyspnoea [Unknown]
  - Arthralgia [Unknown]

NARRATIVE: CASE EVENT DATE: 2015
